FAERS Safety Report 7973524-8 (Version None)
Quarter: 2011Q4

REPORT INFORMATION
  Report Type: 
  Country: None (occurrence: None)
  Receive Date: 20111201
  Receipt Date: 20111116
  Transmission Date: 20120403
  Serious: Yes (Death)
  Sender: FDA-Public Use
  Company Number: RU-1189080

PATIENT
  Age: 25 Year
  Sex: Male

DRUGS (1)
  1. MYDRIACYL 1 % OPHTHALMIC SOLUTION (TROPICAMIDE) [Suspect]
     Dosage: (INTRAVENOUS (NOT OTHERWISE SPECIFIED))
     Route: 042

REACTIONS (10)
  - SKIN DISCOLOURATION [None]
  - POSTURE ABNORMAL [None]
  - OEDEMA PERIPHERAL [None]
  - HAEMORRHAGE [None]
  - EYE DISORDER [None]
  - ABDOMINAL DISTENSION [None]
  - CARDIAC ARREST [None]
  - DRUG ABUSE [None]
  - SWELLING [None]
  - INCORRECT ROUTE OF DRUG ADMINISTRATION [None]
